FAERS Safety Report 6474095-8 (Version None)
Quarter: 2009Q4

REPORT INFORMATION
  Report Type: 
  Country: None (occurrence: None)
  Receive Date: 20091123
  Receipt Date: 20090903
  Transmission Date: 20100525
  Serious: No
  Sender: FDA-Public Use
  Company Number: 8051524

PATIENT
  Age: 56 Year
  Sex: Female
  Weight: 60.78 kg

DRUGS (8)
  1. CIMZIA [Suspect]
     Indication: CROHN'S DISEASE
     Dosage: 400 MG /M SC
     Route: 058
     Dates: start: 20090731
  2. PANTASA [Concomitant]
  3. EVISTA [Concomitant]
  4. B-12 LATINO [Concomitant]
  5. VITAMINS NOS [Concomitant]
  6. FISH OIL [Concomitant]
  7. CRANBERRY [Concomitant]
  8. IRON [Concomitant]

REACTIONS (5)
  - ABDOMINAL PAIN [None]
  - CONSTIPATION [None]
  - FLATULENCE [None]
  - ILEUS [None]
  - NAUSEA [None]
